FAERS Safety Report 20551372 (Version 1)
Quarter: 2022Q1

REPORT INFORMATION
  Report Type: Spontaneous
  Country: NL (occurrence: NL)
  Receive Date: 20220304
  Receipt Date: 20220304
  Transmission Date: 20220423
  Serious: Yes (Other)
  Sender: FDA-Public Use
  Company Number: None

PATIENT
  Sex: Male
  Weight: 60 kg

DRUGS (4)
  1. BUPROPION [Suspect]
     Active Substance: BUPROPION
     Indication: Smoking cessation therapy
     Dosage: 2 DOSAGE FORMS DAILY; 2X DAILY 1 TABLET,BUPROPION TABLET MGA 150MG / BRAND NAME NOT SPECIFIED,THERAP
     Route: 065
     Dates: start: 2019
  2. RISPERDAL [Concomitant]
     Active Substance: RISPERIDONE
     Dosage: 3* 0.5MG IN THE MORNING. 1X 0.5MG AFTERNOON,RISPERIDON TABLET COATED 0.5MG / RISPERDAL TABLET COATED
  3. METHYLPHENIDATE [Concomitant]
     Active Substance: METHYLPHENIDATE
     Dosage: 54 MG (MILLIGRAM),METHYLPHENIDATE TABLET MGA 54MG / CONCERTA TABLET MVA 54MG,THERAPY START DATE :THE
  4. ESCITALOPRAM [Concomitant]
     Active Substance: ESCITALOPRAM OXALATE
     Dosage: 15 MG (MILLIGRAM),ESCITALOPRAM TABLET 15MG / BRAND NAME NOT SPECIFIED,THERAPY START DATE:THERAPY END

REACTIONS (4)
  - Psychotic symptom [Recovered/Resolved]
  - Hallucination, auditory [Recovered/Resolved]
  - Hallucination, visual [Recovered/Resolved]
  - Thermohypoaesthesia [Not Recovered/Not Resolved]
